FAERS Safety Report 12772187 (Version 3)
Quarter: 2017Q1

REPORT INFORMATION
  Report Type: Report from Study
  Country: US (occurrence: US)
  Receive Date: 20160922
  Receipt Date: 20170103
  Transmission Date: 20170428
  Serious: Yes (Hospitalization, Other)
  Sender: FDA-Public Use
  Company Number: US-ALEXION-A201606974

PATIENT
  Sex: Female

DRUGS (4)
  1. SOLIRIS [Suspect]
     Active Substance: ECULIZUMAB
     Indication: PAROXYSMAL NOCTURNAL HAEMOGLOBINURIA
     Dosage: UNK
     Route: 042
  2. ARANESP [Concomitant]
     Active Substance: DARBEPOETIN ALFA
     Indication: PRODUCT USED FOR UNKNOWN INDICATION
     Route: 065
  3. PROMACTA [Concomitant]
     Active Substance: ELTROMBOPAG OLAMINE
     Indication: PRODUCT USED FOR UNKNOWN INDICATION
     Dosage: UNK
     Route: 065
  4. DESFERAL [Suspect]
     Active Substance: DEFEROXAMINE MESYLATE
     Indication: PRODUCT USED FOR UNKNOWN INDICATION
     Dosage: UNK
     Route: 065

REACTIONS (13)
  - Hallucination [Unknown]
  - Fall [Unknown]
  - Renal disorder [Recovered/Resolved]
  - Abdominal pain [Unknown]
  - Haemoglobin decreased [Unknown]
  - Macular degeneration [Unknown]
  - Blood sodium decreased [Recovered/Resolved]
  - Spinal column injury [Unknown]
  - Asthenia [Unknown]
  - Adverse drug reaction [Unknown]
  - Balance disorder [Unknown]
  - Optic nerve disorder [Unknown]
  - Oedema peripheral [Unknown]
